FAERS Safety Report 7286679-8 (Version None)
Quarter: 2011Q1

REPORT INFORMATION
  Report Type: 
  Country: None (occurrence: None)
  Receive Date: 20110210
  Receipt Date: 20110203
  Transmission Date: 20110831
  Serious: Yes (Hospitalization)
  Sender: FDA-Public Use
  Company Number: JP-B.I. PHARMACEUTICALS,INC./RIDGEFIELD-2011-BP-01928BP

PATIENT
  Sex: Male

DRUGS (5)
  1. ALLEGRA [Suspect]
     Indication: SEASONAL ALLERGY
     Dosage: 120 MG
     Route: 048
     Dates: start: 20101227
  2. VOGLIBOSE [Suspect]
     Indication: TYPE 2 DIABETES MELLITUS
     Dosage: 0.9 MG
     Route: 048
     Dates: start: 20100405
  3. LOCHOL [Suspect]
     Indication: DYSLIPIDAEMIA
     Dosage: 60 MG
     Route: 048
     Dates: start: 20100726
  4. MICARDIS [Suspect]
     Dosage: 40 MG
     Route: 048
     Dates: start: 20101227
  5. SAXAGLIPTIN [Suspect]
     Indication: TYPE 2 DIABETES MELLITUS
     Dosage: 5 MG
     Route: 048
     Dates: start: 20100927, end: 20110105

REACTIONS (1)
  - VIITH NERVE PARALYSIS [None]
